FAERS Safety Report 4887596-0 (Version None)
Quarter: 2006Q1

REPORT INFORMATION
  Report Type: 
  Country: None (occurrence: None)
  Receive Date: 20060119
  Receipt Date: 20060119
  Transmission Date: 20060701
  Serious: Yes (Hospitalization, Other)
  Sender: FDA-Public Use
  Company Number: None

PATIENT
  Age: 64 Year
  Sex: Male

DRUGS (1)
  1. TRAZODONE 50 MG PO [Suspect]
     Dosage: 50 MG X 2
     Route: 048

REACTIONS (4)
  - FALL [None]
  - GAIT DISTURBANCE [None]
  - MENTAL STATUS CHANGES [None]
  - SOMNOLENCE [None]
